FAERS Safety Report 26058923 (Version 1)
Quarter: 2025Q4

REPORT INFORMATION
  Report Type: Spontaneous
  Country: US (occurrence: US)
  Receive Date: 20251118
  Receipt Date: 20251118
  Transmission Date: 20260117
  Serious: No
  Sender: COLLEGIUM PHARMACEUTICAL
  Company Number: US-COLLEGIUM PHARMACEUTICAL, INC.-20250702394

PATIENT

DRUGS (1)
  1. BELBUCA [Suspect]
     Active Substance: BUPRENORPHINE HYDROCHLORIDE
     Indication: Product used for unknown indication
     Dosage: 300 MICROGRAM, UNKNOWN
     Route: 002
     Dates: start: 202507

REACTIONS (5)
  - Incorrect route of product administration [Unknown]
  - Product use complaint [Unknown]
  - Therapeutic response decreased [Unknown]
  - Nausea [Unknown]
  - Product adhesion issue [None]

NARRATIVE: CASE EVENT DATE: 20250701
